FAERS Safety Report 7446978-3 (Version None)
Quarter: 2011Q2

REPORT INFORMATION
  Report Type: 
  Country: None (occurrence: None)
  Receive Date: 20110429
  Receipt Date: 20101110
  Transmission Date: 20111010
  Serious: No
  Sender: FDA-Public Use
  Company Number: US-ASTRAZENECA-2010SE53450

PATIENT
  Age: 85 Year
  Sex: Female
  Weight: 50.8 kg

DRUGS (4)
  1. ZETIA [Concomitant]
  2. NORVASC [Concomitant]
  3. NEXIUM [Suspect]
     Indication: GASTROOESOPHAGEAL REFLUX DISEASE
     Route: 048
  4. EVISTA [Concomitant]

REACTIONS (2)
  - DRUG DOSE OMISSION [None]
  - FAECES DISCOLOURED [None]
